FAERS Safety Report 15605926 (Version 2)
Quarter: 2018Q4

REPORT INFORMATION
  Report Type: Spontaneous
  Country: FR (occurrence: FR)
  Receive Date: 20181112
  Receipt Date: 20181113
  Transmission Date: 20190205
  Serious: Yes (Hospitalization)
  Sender: FDA-Public Use
  Company Number: FR-TEVA-2018-FR-971621

PATIENT
  Age: 1 Month
  Sex: Female

DRUGS (1)
  1. FLUCONAZOLE TEVA 100 MG [Suspect]
     Active Substance: FLUCONAZOLE
     Route: 063

REACTIONS (5)
  - Exposure via breast milk [Unknown]
  - Viral infection [Unknown]
  - Vomiting [Unknown]
  - Diarrhoea [Unknown]
  - Respiratory tract congestion [Unknown]

NARRATIVE: CASE EVENT DATE: 20181025
